FAERS Safety Report 24263568 (Version 1)
Quarter: 2024Q3

REPORT INFORMATION
  Report Type: Spontaneous
  Country: CN (occurrence: CN)
  Receive Date: 20240829
  Receipt Date: 20240829
  Transmission Date: 20241017
  Serious: Yes (Other)
  Sender: PFIZER
  Company Number: CN-PFIZER INC-PV202400110601

PATIENT
  Age: 50 Year
  Sex: Female
  Weight: 52 kg

DRUGS (2)
  1. ZYVOX [Suspect]
     Active Substance: LINEZOLID
     Indication: Mastitis
     Dosage: 0.6 G, 2X/DAY
     Route: 041
     Dates: start: 20240730, end: 20240812
  2. ZYVOX [Suspect]
     Active Substance: LINEZOLID
     Indication: Breast abscess

REACTIONS (4)
  - Superinfection [Unknown]
  - Tongue discolouration [Not Recovered/Not Resolved]
  - Cough [Unknown]
  - Productive cough [Unknown]

NARRATIVE: CASE EVENT DATE: 20240803
